FAERS Safety Report 4312474-5 (Version None)
Quarter: 2004Q1

REPORT INFORMATION
  Report Type: 
  Country: None (occurrence: None)
  Receive Date: 20040305
  Receipt Date: 20040226
  Transmission Date: 20041129
  Serious: Yes (Hospitalization)
  Sender: FDA-Public Use
  Company Number: PHBS2004FR02662

PATIENT
  Age: 86 Year
  Sex: Female

DRUGS (8)
  1. CARTEOLOL HCL [Suspect]
     Dates: start: 20030611, end: 20030821
  2. RABEPRAZOLE SODIUM [Suspect]
     Dosage: 20 MG, UNK
     Route: 048
     Dates: start: 20030804, end: 20030819
  3. ASPIRIN [Concomitant]
     Dates: start: 20010701
  4. DIAFUSOR [Concomitant]
     Dates: start: 19970701
  5. VASTEN [Concomitant]
  6. DAONIL [Concomitant]
     Dosage: UNK, UNK
  7. METFORMIN HCL [Concomitant]
  8. ISOPTIN TAB [Concomitant]
     Dates: start: 20010701

REACTIONS (4)
  - PRURITUS GENERALISED [None]
  - PYREXIA [None]
  - RASH MACULO-PAPULAR [None]
  - TOXIC SKIN ERUPTION [None]
